FAERS Safety Report 6480501-5 (Version None)
Quarter: 2009Q4

REPORT INFORMATION
  Report Type: 
  Country: None (occurrence: None)
  Receive Date: 20091208
  Receipt Date: 20091204
  Transmission Date: 20100525
  Serious: Yes (Life-Threatening)
  Sender: FDA-Public Use
  Company Number: BE-ASTRAZENECA-2009SE27643

PATIENT
  Age: 63 Year
  Sex: Female
  Weight: 53 kg

DRUGS (6)
  1. NAROPIN [Suspect]
     Dosage: 14 MG/H, 105 MG
     Route: 042
     Dates: start: 20090923, end: 20090924
  2. DAFALGAN [Concomitant]
  3. IBITAN [Concomitant]
  4. DOLZAM [Concomitant]
  5. CEFACIDAL [Concomitant]
  6. COZAAR [Concomitant]
     Indication: HYPOTENSION
     Route: 048
     Dates: start: 20040101

REACTIONS (3)
  - ACUTE RESPIRATORY DISTRESS SYNDROME [None]
  - HYPOTENSION [None]
  - PULMONARY OEDEMA [None]
